FAERS Safety Report 10368144 (Version 1)
Quarter: 2014Q1

REPORT INFORMATION
  Report Type: Spontaneous
  Country: US (occurrence: None)
  Receive Date: 20140306
  Receipt Date: 20140306
  Transmission Date: 20141002
  Serious: Yes (Other)
  Sender: FDA-Public Use
  Company Number: 163-21880-13083603

PATIENT
  Age: 79 Year
  Sex: Male

DRUGS (10)
  1. REVLIMID (LENALIDOMIDE) (10 MILLIGRAM, CAPSULES) [Suspect]
     Indication: PLASMA CELL MYELOMA
     Dosage: 10 MG, 21 IN 28 D, PO
     Route: 048
     Dates: start: 20110315
  2. ZOCOR (UNKNOWN) [Concomitant]
  3. DEXAMETHASONE (DEXAMETHASONE) (UNKNOWN) [Concomitant]
  4. PRADAXA (DABIGATRAN ETEXILATE MESILATE) (UNKNOWN) [Concomitant]
  5. CALCIUM CITRATE + VITAMIN D [Concomitant]
  6. ULTRACET (ULTRACET) (UNKNOWN) [Concomitant]
  7. LONGS GLUCOSAMINE CHONDROTIN (UNKNOWN) [Concomitant]
  8. CENTRUM SILVER (CENTRUM SILVER) (UNKNOWN) [Concomitant]
  9. NEXIUM (ESOMEPRAZOLE) (UNKNOWN) [Concomitant]
  10. TOPROL XL (METOPROLOL SUCCINATE) (UNKNOWN) [Concomitant]

REACTIONS (2)
  - Thrombosis [None]
  - Diarrhoea [None]
